FAERS Safety Report 20156314 (Version 1)
Quarter: 2021Q4

REPORT INFORMATION
  Report Type: Spontaneous
  Country: DE (occurrence: DE)
  Receive Date: 20211207
  Receipt Date: 20211207
  Transmission Date: 20220303
  Serious: Yes (Other)
  Sender: FDA-Public Use
  Company Number: DE-NOVARTISPH-NVSC2021DE273137

PATIENT
  Age: 7 Decade
  Sex: Male

DRUGS (40)
  1. HYDROCHLOROTHIAZIDE\VALSARTAN [Suspect]
     Active Substance: HYDROCHLOROTHIAZIDE\VALSARTAN
     Indication: Hypertension
     Dosage: 1 DOSAGE FORM (CONTAINS 160 MG VALSARTAN AND 12.5 MG HYDROCHLOROTHIAZIDE)
     Route: 048
     Dates: start: 20120116
  2. HYDROCHLOROTHIAZIDE\VALSARTAN [Suspect]
     Active Substance: HYDROCHLOROTHIAZIDE\VALSARTAN
     Dosage: UNK
     Route: 048
     Dates: start: 20130110
  3. HYDROCHLOROTHIAZIDE\VALSARTAN [Suspect]
     Active Substance: HYDROCHLOROTHIAZIDE\VALSARTAN
     Indication: Hypertension
     Dosage: 1 DOSAGE FORM (CONTAINS 160 MG VALSARTAN AND 12.5 MG HYDROCHLOROTHIAZIDE)
     Route: 048
     Dates: start: 20120220, end: 201301
  4. VALSARTAN [Suspect]
     Active Substance: VALSARTAN
     Indication: Hypertension
     Dosage: 320 MG
     Route: 048
     Dates: start: 20141001
  5. VALSARTAN [Suspect]
     Active Substance: VALSARTAN
     Dosage: UNK
     Route: 048
     Dates: start: 20151014
  6. VALSARTAN [Suspect]
     Active Substance: VALSARTAN
     Dosage: UNK
     Route: 048
     Dates: start: 20160330
  7. VALSARTAN [Suspect]
     Active Substance: VALSARTAN
     Dosage: UNK
     Route: 048
     Dates: start: 20161010
  8. VALSARTAN [Suspect]
     Active Substance: VALSARTAN
     Dosage: UNK
     Route: 048
     Dates: start: 20170524
  9. HYDROCHLOROTHIAZIDE\VALSARTAN [Suspect]
     Active Substance: HYDROCHLOROTHIAZIDE\VALSARTAN
     Indication: Product used for unknown indication
     Dosage: 1 DOSAGE FORM (CONTAINS 320 MG VALSARTAN AND 25 MG HYDROCHLOROTHIAZIDE)
     Route: 048
     Dates: start: 20130513
  10. HYDROCHLOROTHIAZIDE\VALSARTAN [Suspect]
     Active Substance: HYDROCHLOROTHIAZIDE\VALSARTAN
     Dosage: 1 DOSAGE FORM (CONTAINS 320 MG VALSARTAN AND 25 MG HYDROCHLOROTHIAZIDE)
     Route: 048
     Dates: start: 20140520
  11. HYDROCHLOROTHIAZIDE\VALSARTAN [Suspect]
     Active Substance: HYDROCHLOROTHIAZIDE\VALSARTAN
     Dosage: 1 DOSAGE FORM (CONTAINS 320 MG VALSARTAN AND 25 MG HYDROCHLOROTHIAZIDE)
     Route: 048
     Dates: start: 20141216
  12. HYDROCHLOROTHIAZIDE\VALSARTAN [Suspect]
     Active Substance: HYDROCHLOROTHIAZIDE\VALSARTAN
     Dosage: 1 DOSAGE FORM (CONTAINS 320 MG VALSARTAN AND 25 MG HYDROCHLOROTHIAZIDE)
     Route: 048
     Dates: start: 20150622
  13. HYDROCHLOROTHIAZIDE\VALSARTAN [Suspect]
     Active Substance: HYDROCHLOROTHIAZIDE\VALSARTAN
     Dosage: 1 DOSAGE FORM (CONTAINS 320 MG VALSARTAN AND 25 MG HYDROCHLOROTHIAZIDE)
     Route: 048
     Dates: start: 20160114
  14. HYDROCHLOROTHIAZIDE\VALSARTAN [Suspect]
     Active Substance: HYDROCHLOROTHIAZIDE\VALSARTAN
     Dosage: 1 DOSAGE FORM (CONTAINS 320 MG VALSARTAN AND 25 MG HYDROCHLOROTHIAZIDE)
     Route: 048
     Dates: start: 20160601
  15. HYDROCHLOROTHIAZIDE\VALSARTAN [Suspect]
     Active Substance: HYDROCHLOROTHIAZIDE\VALSARTAN
     Dosage: 1 DOSAGE FORM (CONTAINS 320 MG VALSARTAN AND 25 MG HYDROCHLOROTHIAZIDE)
     Route: 048
     Dates: start: 20161115
  16. HYDROCHLOROTHIAZIDE\VALSARTAN [Suspect]
     Active Substance: HYDROCHLOROTHIAZIDE\VALSARTAN
     Dosage: 1 DOSAGE FORM (CONTAINS 320 MG VALSARTAN AND 25 MG HYDROCHLOROTHIAZIDE)
     Route: 048
     Dates: start: 20170524
  17. HYDROCHLOROTHIAZIDE\VALSARTAN [Suspect]
     Active Substance: HYDROCHLOROTHIAZIDE\VALSARTAN
     Dosage: 1 DOSAGE FORM (CONTAINS 320 MG VALSARTAN AND 25 MG HYDROCHLOROTHIAZIDE)
     Route: 048
     Dates: start: 20180115
  18. PROMETHAZIN-NEURAXPHARM [Concomitant]
     Indication: Product used for unknown indication
     Dosage: 100 MG
     Route: 065
     Dates: start: 20141218
  19. BUDESONIDE [Concomitant]
     Active Substance: BUDESONIDE
     Indication: Product used for unknown indication
     Dosage: UNK (BUDESONID ACIS NASAL SPRAY AND BUDES NASAL SPRAY)
     Route: 065
     Dates: start: 20120116
  20. BUDESONIDE [Concomitant]
     Active Substance: BUDESONIDE
     Dosage: UNK (INHALER, BUDESONID EASYH 0.2 MG)
     Route: 065
     Dates: start: 20130513
  21. EUTHYROX [Concomitant]
     Active Substance: LEVOTHYROXINE SODIUM
     Indication: Product used for unknown indication
     Dosage: 200 MG
     Route: 065
     Dates: start: 20120220
  22. EUTHYROX [Concomitant]
     Active Substance: LEVOTHYROXINE SODIUM
     Dosage: 25 MG
     Route: 065
     Dates: start: 20120309
  23. EUTHYROX [Concomitant]
     Active Substance: LEVOTHYROXINE SODIUM
     Dosage: 175 MG
     Route: 065
     Dates: start: 20151016
  24. CEFUROXIME AXETIL [Concomitant]
     Active Substance: CEFUROXIME AXETIL
     Indication: Product used for unknown indication
     Dosage: 500 MG
     Route: 065
     Dates: start: 20151208
  25. METAMIZOLE [Concomitant]
     Active Substance: METAMIZOLE
     Indication: Product used for unknown indication
     Dosage: 500 MG, BERLOSIN AND NOVAMINSULFON LICHTENSTEIN 500 MG
     Route: 065
     Dates: start: 20160601
  26. ORTOTON [Concomitant]
     Indication: Product used for unknown indication
     Dosage: UNK
     Route: 065
     Dates: start: 20150828
  27. AMLODIPIN HEXAL [Concomitant]
     Indication: Product used for unknown indication
     Dosage: 10 MG
     Route: 065
     Dates: start: 20120220
  28. OMEPRAZOLE [Concomitant]
     Active Substance: OMEPRAZOLE
     Indication: Product used for unknown indication
     Dosage: 20 MG, OMEPRAZOL STADA, OMEPRAZOL HEUMANN, OMEPRAZOL DEXCEL, OMEPRAZOL AL, OMEPRAZOL ABZ, OMEP
     Route: 065
     Dates: start: 20120220
  29. ZOLPIDEM TARTRATE [Concomitant]
     Active Substance: ZOLPIDEM TARTRATE
     Indication: Initial insomnia
     Dosage: 10 MG
     Route: 065
     Dates: start: 20141128
  30. TRAMADOL LIBRAPHARM [Concomitant]
     Indication: Product used for unknown indication
     Dosage: 50 MG
     Route: 065
     Dates: start: 20150828
  31. FLUTICASONE PROPIONATE\SALMETEROL XINAFOATE [Concomitant]
     Active Substance: FLUTICASONE PROPIONATE\SALMETEROL XINAFOATE
     Indication: Product used for unknown indication
     Dosage: UNK
     Route: 065
     Dates: start: 20150424
  32. BUPIVACAINE HYDROCHLORIDE [Concomitant]
     Active Substance: BUPIVACAINE HYDROCHLORIDE
     Indication: Product used for unknown indication
     Dosage: UNK
     Route: 065
     Dates: start: 20180201
  33. IBUPROFEN [Concomitant]
     Active Substance: IBUPROFEN
     Indication: Product used for unknown indication
     Dosage: IBUPROFEN 600 1A PHARMA, IBUFLAM 600 MG, IBUHEXAL 600, IBUPROFEN ABZ 600 MG, IBUPROFEN AL 600
     Route: 065
     Dates: start: 20120126, end: 2017
  34. ETORICOXIB [Concomitant]
     Active Substance: ETORICOXIB
     Indication: Product used for unknown indication
     Dosage: 60 MG, ARCOXIA 60 MG AND ETORICOXIB STADA 60 MG
     Route: 065
     Dates: start: 20160609, end: 2018
  35. ENOXAPARIN SODIUM [Concomitant]
     Active Substance: ENOXAPARIN SODIUM
     Indication: Product used for unknown indication
     Dosage: UNK
     Route: 065
     Dates: start: 20151028, end: 2015
  36. SALBUHEXAL [Concomitant]
     Active Substance: ALBUTEROL
     Indication: Product used for unknown indication
     Dosage: UNK
     Route: 065
     Dates: start: 20130513
  37. LEVOFLOXACIN [Concomitant]
     Active Substance: LEVOFLOXACIN
     Indication: Product used for unknown indication
     Dosage: 500 MG
     Route: 065
     Dates: start: 20151215
  38. SIMVASTATIN [Concomitant]
     Active Substance: SIMVASTATIN
     Indication: Product used for unknown indication
     Dosage: 40 MG (SIMVA ARISTO, SIMVA BASICS, SIMVASTATIN 1A PHARMA, SIMVASTATIN ABZ)
     Route: 065
     Dates: start: 20131105
  39. FLUTICASONE PROPIONATE\SALMETEROL XINAFOATE [Concomitant]
     Active Substance: FLUTICASONE PROPIONATE\SALMETEROL XINAFOATE
     Indication: Product used for unknown indication
     Dosage: UNK (50 MICROGRAM SALMETEROL AND 500 MICROGRAM FLUTICASONE)
     Route: 065
     Dates: start: 20160303, end: 2016
  40. ACEMETACIN [Concomitant]
     Active Substance: ACEMETACIN
     Indication: Product used for unknown indication
     Dosage: UNK
     Route: 065
     Dates: start: 20151008, end: 2016

REACTIONS (23)
  - Mental impairment [Unknown]
  - Fear of death [Unknown]
  - Hyperhidrosis [Unknown]
  - Dry mouth [Unknown]
  - Fear of disease [Unknown]
  - Chills [Unknown]
  - Restlessness [Unknown]
  - Tremor [Unknown]
  - Chest pain [Unknown]
  - Hyperventilation [Unknown]
  - Discomfort [Unknown]
  - Feeling hot [Unknown]
  - Suffocation feeling [Unknown]
  - Sleep disorder [Unknown]
  - Anxiety disorder [Unknown]
  - Sense of oppression [Unknown]
  - Anxiety [Unknown]
  - Abdominal discomfort [Unknown]
  - Palpitations [Unknown]
  - Muscle tightness [Unknown]
  - Dizziness [Unknown]
  - Nausea [Unknown]
  - Product impurity [Unknown]
